FAERS Safety Report 4978298-0 (Version None)
Quarter: 2006Q1

REPORT INFORMATION
  Report Type: 
  Country: None (occurrence: None)
  Receive Date: 20060223
  Receipt Date: 20050620
  Transmission Date: 20060701
  Serious: Yes (Hospitalization)
  Sender: FDA-Public Use
  Company Number: 05-0072NI

PATIENT
  Age: 61 Year
  Sex: Male

DRUGS (1)
  1. NITROLINGUAL PUMPSPRAY [Suspect]
     Indication: ANGINA PECTORIS
     Dosage: SUBLINGUAL
     Route: 060

REACTIONS (1)
  - DRUG INEFFECTIVE [None]
